FAERS Safety Report 4700534-6 (Version None)
Quarter: 2005Q2

REPORT INFORMATION
  Report Type: 
  Country: None (occurrence: None)
  Receive Date: 20050627
  Receipt Date: 20050627
  Transmission Date: 20051028
  Serious: Yes (Disabling)
  Sender: FDA-Public Use
  Company Number: None

PATIENT
  Age: 67 Year
  Sex: Female
  Weight: 68 kg

DRUGS (7)
  1. NAMENDA [Suspect]
     Indication: DEMENTIA ALZHEIMER'S TYPE
     Dosage: 5MG   BID   ORAL
     Route: 048
     Dates: start: 20050301, end: 20050401
  2. PRINIVIL [Concomitant]
  3. NOVOLIN [Concomitant]
  4. REGLAN [Concomitant]
  5. CARAFATE [Concomitant]
  6. K-DUR 10 [Concomitant]
  7. PREVACID [Concomitant]

REACTIONS (1)
  - DEPRESSION [None]
